FAERS Safety Report 15231336 (Version 2)
Quarter: 2018Q3

REPORT INFORMATION
  Report Type: Spontaneous
  Country: AT (occurrence: AT)
  Receive Date: 20180802
  Receipt Date: 20180814
  Transmission Date: 20181010
  Serious: Yes (Hospitalization)
  Sender: FDA-Public Use
  Company Number: PHHY2018AT060792

PATIENT
  Age: 71 Year
  Sex: Female

DRUGS (3)
  1. PEMBROLIZUMAB. [Suspect]
     Active Substance: PEMBROLIZUMAB
     Indication: RENAL CELL CARCINOMA
     Dosage: 200 MG, Q3W
     Route: 042
     Dates: start: 20180417, end: 20180502
  2. LENVATINIB [Suspect]
     Active Substance: LENVATINIB
     Indication: RENAL CELL CARCINOMA
     Dosage: 20 MG, QD
     Route: 048
     Dates: start: 20180417, end: 20180502
  3. OLMESARTAN MEDOXOMIL+HYDROCHLOROTHIAZIDE [Suspect]
     Active Substance: HYDROCHLOROTHIAZIDE\OLMESARTAN MEDOXOMIL
     Indication: HYPERTENSION
     Dosage: 1 OT, QD
     Route: 048
     Dates: start: 2016, end: 20180502

REACTIONS (2)
  - Hyponatraemia [Recovered/Resolved]
  - Amylase increased [Recovering/Resolving]

NARRATIVE: CASE EVENT DATE: 20180502
